FAERS Safety Report 4279981-5 (Version None)
Quarter: 2004Q1

REPORT INFORMATION
  Report Type: 
  Country: None (occurrence: None)
  Receive Date: 20040114
  Receipt Date: 20040108
  Transmission Date: 20041129
  Serious: Yes (Other)
  Sender: FDA-Public Use
  Company Number: FRWYE500409JAN04

PATIENT
  Age: 3 Year
  Sex: Male

DRUGS (1)
  1. REFACTO [Suspect]
     Indication: FACTOR VIII DEFICIENCY
     Dosage: ONE INJECTION WEEKLY AS PROPHYLACTIC REGIMEN
     Route: 042

REACTIONS (8)
  - ANGIONEUROTIC OEDEMA [None]
  - BRADYCARDIA [None]
  - ERYTHEMA [None]
  - INJECTION SITE HAEMORRHAGE [None]
  - MALAISE [None]
  - SYNCOPE VASOVAGAL [None]
  - VOMITING [None]
  - WHEEZING [None]
